FAERS Safety Report 20765485 (Version 2)
Quarter: 2024Q1

REPORT INFORMATION
  Report Type: Spontaneous
  Country: US (occurrence: US)
  Receive Date: 20220428
  Receipt Date: 20240102
  Transmission Date: 20240410
  Serious: No
  Sender: FDA-Public Use
  Company Number: US-SA-SAC20220426002211

PATIENT
  Age: 22 Year
  Sex: Female

DRUGS (7)
  1. DUPIXENT [Suspect]
     Active Substance: DUPILUMAB
     Indication: Psoriatic arthropathy
     Dosage: 300 MG, QOW
     Route: 058
     Dates: start: 20211130
  2. DEXAMETHASONE [Concomitant]
     Active Substance: DEXAMETHASONE
  3. GINGER [Concomitant]
     Active Substance: GINGER
     Dosage: 500 MG
  4. HERBALS\TURMERIC [Concomitant]
     Active Substance: HERBALS\TURMERIC
     Dosage: 500 MG
  5. PREDNISONE [Concomitant]
     Active Substance: PREDNISONE
  6. EPINEPHRINE [Concomitant]
     Active Substance: EPINEPHRINE
  7. GINGER [Concomitant]
     Active Substance: GINGER

REACTIONS (3)
  - Injection site reaction [Unknown]
  - Product use in unapproved indication [Unknown]
  - Drug ineffective [Unknown]

NARRATIVE: CASE EVENT DATE: 20211130
